FAERS Safety Report 9101715 (Version 1)
Quarter: 2013Q1

REPORT INFORMATION
  Report Type: Spontaneous
  Country: US (occurrence: US)
  Receive Date: 20130218
  Receipt Date: 20130218
  Transmission Date: 20140127
  Serious: No
  Sender: FDA-Public Use
  Company Number: US-009507513-1302USA004601

PATIENT
  Age: 62 Year
  Sex: Female

DRUGS (2)
  1. RIBAVIRIN [Suspect]
     Indication: HEPATITIS C
     Dosage: UNK
     Dates: start: 20130208
  2. PEGASYL [Suspect]
     Indication: HEPATITIS C
     Dosage: UNK
     Dates: start: 20130208

REACTIONS (1)
  - Headache [Unknown]
